FAERS Safety Report 9370810 (Version 2)
Quarter: 2013Q2

REPORT INFORMATION
  Report Type: Spontaneous
  Country: US (occurrence: US)
  Receive Date: 20130626
  Receipt Date: 20130628
  Transmission Date: 20140414
  Serious: No
  Sender: FDA-Public Use
  Company Number: US-009507513-1306USA008943

PATIENT
  Age: 30 Year
  Sex: Female
  Weight: 136.5 kg

DRUGS (1)
  1. IMPLANON [Suspect]
     Dosage: 1 ROD, UNK
     Route: 059
     Dates: start: 20110702

REACTIONS (2)
  - Device breakage [Unknown]
  - No adverse event [Unknown]
